FAERS Safety Report 23478043 (Version 3)
Quarter: 2024Q2

REPORT INFORMATION
  Report Type: Spontaneous
  Country: FR (occurrence: FR)
  Receive Date: 20240204
  Receipt Date: 20240509
  Transmission Date: 20240716
  Serious: Yes (Hospitalization, Other)
  Sender: FDA-Public Use
  Company Number: None

PATIENT

DRUGS (3)
  1. ALBUTEROL [Suspect]
     Active Substance: ALBUTEROL
     Indication: Dyspnoea
     Dosage: 1 DF, SINGLE
     Route: 055
     Dates: start: 20240112, end: 20240112
  2. SERETIDE [Concomitant]
     Active Substance: FLUTICASONE PROPIONATE\SALMETEROL XINAFOATE
     Indication: Product used for unknown indication
     Dosage: UNK
     Route: 065
  3. Solupred [Concomitant]
     Indication: Product used for unknown indication
     Dosage: UNK
     Route: 065

REACTIONS (16)
  - Delirium [Recovered/Resolved]
  - Psychiatric decompensation [Unknown]
  - Agitation [Unknown]
  - Hallucination [Unknown]
  - Bronchial obstruction [Unknown]
  - Loss of consciousness [Unknown]
  - Suicidal behaviour [Unknown]
  - Dizziness [Unknown]
  - Headache [Unknown]
  - Fall [Unknown]
  - Photopsia [Unknown]
  - Cough [Unknown]
  - Dyspnoea [Unknown]
  - Flatulence [Unknown]
  - Incorrect dose administered [Unknown]
  - Product quality issue [Unknown]

NARRATIVE: CASE EVENT DATE: 20240112
